FAERS Safety Report 18928170 (Version 1)
Quarter: 2021Q1

REPORT INFORMATION
  Report Type: Report from Study
  Country: US (occurrence: US)
  Receive Date: 20210223
  Receipt Date: 20210223
  Transmission Date: 20210420
  Serious: Yes (Death)
  Sender: FDA-Public Use
  Company Number: US-BAUSCH-BL-2021-005382

PATIENT
  Age: 76 Year
  Sex: Male

DRUGS (1)
  1. LODOSYN [Suspect]
     Active Substance: CARBIDOPA
     Indication: PARKINSON^S DISEASE
     Route: 048

REACTIONS (1)
  - Sepsis [Fatal]
